FAERS Safety Report 11915714 (Version 1)
Quarter: 2016Q1

REPORT INFORMATION
  Report Type: Spontaneous
  Country: US (occurrence: US)
  Receive Date: 20160114
  Receipt Date: 20160114
  Transmission Date: 20160526
  Serious: No
  Sender: FDA-Public Use
  Company Number: US-TEVA-625682ACC

PATIENT
  Sex: Female
  Weight: 56.75 kg

DRUGS (1)
  1. PARAGARD T 380A [Suspect]
     Active Substance: COPPER
     Indication: CONTRACEPTION
     Route: 065
     Dates: start: 2011, end: 2013

REACTIONS (3)
  - Vaginal discharge [Unknown]
  - Vaginal odour [Unknown]
  - Bacterial infection [Recovered/Resolved]
